APPROVED DRUG PRODUCT: VANCOMYCIN HYDROCHLORIDE
Active Ingredient: VANCOMYCIN HYDROCHLORIDE
Strength: EQ 250MG BASE/5ML
Dosage Form/Route: FOR SOLUTION;ORAL
Application: A215338 | Product #001
Applicant: AMNEAL PHARMACEUTICALS LLC
Approved: Jun 23, 2023 | RLD: No | RS: No | Type: DISCN